FAERS Safety Report 22110274 (Version 1)
Quarter: 2023Q1

REPORT INFORMATION
  Report Type: Spontaneous
  Country: FR (occurrence: FR)
  Receive Date: 20230317
  Receipt Date: 20230317
  Transmission Date: 20230418
  Serious: Yes (Hospitalization)
  Sender: FDA-Public Use
  Company Number: None

PATIENT
  Age: 52 Year
  Sex: Male
  Weight: 75.5 kg

DRUGS (2)
  1. COTRIMOXAZOLE [Suspect]
     Active Substance: SULFAMETHOXAZOLE\TRIMETHOPRIM
     Indication: Osteitis
     Dosage: FORM STRENGTH : 800MG/160MG
     Route: 065
     Dates: start: 20230123, end: 20230203
  2. CIPROFLOXACIN [Suspect]
     Active Substance: CIPROFLOXACIN
     Indication: Osteitis
     Route: 065
     Dates: start: 20230123, end: 20230203

REACTIONS (2)
  - Acute kidney injury [Recovering/Resolving]
  - Blood thyroid stimulating hormone decreased [Recovering/Resolving]

NARRATIVE: CASE EVENT DATE: 20230130
